FAERS Safety Report 15279791 (Version 1)
Quarter: 2018Q3

REPORT INFORMATION
  Report Type: Report from Study
  Country: US (occurrence: US)
  Receive Date: 20180815
  Receipt Date: 20180815
  Transmission Date: 20181010
  Serious: Yes (Hospitalization)
  Sender: FDA-Public Use
  Company Number: US-GILEAD-2018-0350811

PATIENT
  Age: 42 Year
  Sex: Female

DRUGS (2)
  1. SILDENAFIL. [Suspect]
     Active Substance: SILDENAFIL
     Indication: PULMONARY HYPERTENSION
     Dosage: 40 MG, TID
     Route: 065
     Dates: start: 20161111
  2. AMBRISENTAN [Suspect]
     Active Substance: AMBRISENTAN
     Indication: PULMONARY HYPERTENSION
     Dosage: 10 MG, QD
     Route: 065
     Dates: start: 20131025

REACTIONS (6)
  - Cardiac disorder [Unknown]
  - Dyspnoea [Not Recovered/Not Resolved]
  - Drug dose omission [Recovered/Resolved]
  - Hyperhidrosis [Not Recovered/Not Resolved]
  - Gait inability [Not Recovered/Not Resolved]
  - Heart rate increased [Not Recovered/Not Resolved]

NARRATIVE: CASE EVENT DATE: 20180626
